FAERS Safety Report 16651305 (Version 2)
Quarter: 2019Q3

REPORT INFORMATION
  Report Type: Spontaneous
  Country: GB (occurrence: GB)
  Receive Date: 20190731
  Receipt Date: 20190904
  Transmission Date: 20191004
  Serious: Yes (Other)
  Sender: FDA-Public Use
  Company Number: GB-NXDC-GLE-0029-2019

PATIENT
  Age: 70 Year
  Sex: Male

DRUGS (1)
  1. GLIOLAN [Suspect]
     Active Substance: AMINOLEVULINIC ACID HYDROCHLORIDE
     Indication: TUMOUR EXCISION
     Dates: start: 201906

REACTIONS (2)
  - Bradycardia [Recovered/Resolved]
  - Cardiac function disturbance postoperative [Recovered/Resolved]

NARRATIVE: CASE EVENT DATE: 20190625
